FAERS Safety Report 10062571 (Version 1)
Quarter: 2014Q2

REPORT INFORMATION
  Report Type: Report from Study
  Country: US (occurrence: US)
  Receive Date: 20140407
  Receipt Date: 20140407
  Transmission Date: 20141212
  Serious: Yes (Hospitalization)
  Sender: FDA-Public Use
  Company Number: US-ABBVIE-14P-163-1219695-00

PATIENT
  Sex: Male
  Weight: 86.26 kg

DRUGS (3)
  1. HUMIRA [Suspect]
     Indication: CROHN^S DISEASE
     Dates: start: 20131126
  2. HUMIRA [Suspect]
     Dates: start: 201312, end: 201312
  3. HUMIRA [Suspect]
     Dates: start: 201312, end: 20140110

REACTIONS (1)
  - Intestinal stenosis [Recovering/Resolving]
